FAERS Safety Report 8669228 (Version 4)
Quarter: 2013Q4

REPORT INFORMATION
  Report Type: Spontaneous
  Country: US (occurrence: US)
  Receive Date: 20120717
  Receipt Date: 20131015
  Transmission Date: 20140711
  Serious: Yes (Other)
  Sender: FDA-Public Use
  Company Number: US-PFIZER INC-2012171499

PATIENT
  Age: 56 Year
  Sex: Female
  Weight: 109 kg

DRUGS (8)
  1. CELEBREX [Suspect]
     Indication: ARTHRITIS
     Dosage: 200 MG, 1X/DAY
     Route: 048
     Dates: end: 20120712
  2. CELEBREX [Suspect]
     Indication: MOBILITY DECREASED
  3. LYRICA [Suspect]
     Indication: NEUROPATHY PERIPHERAL
     Dosage: 100 MG, 2X/DAY
     Route: 048
  4. LYRICA [Suspect]
     Indication: PAIN IN EXTREMITY
  5. LYRICA [Suspect]
     Indication: HYPOAESTHESIA
  6. SYNTHROID [Concomitant]
     Indication: HYPOTHYROIDISM
     Dosage: UNK
  7. PERCOCET [Concomitant]
     Indication: PAIN
     Dosage: UNK
  8. KLONOPIN [Concomitant]
     Indication: RESTLESS LEGS SYNDROME
     Dosage: 1 MG, 1X/DAY

REACTIONS (19)
  - Intentional drug misuse [Unknown]
  - Malignant melanoma [Recovered/Resolved]
  - Lumbar vertebral fracture [Recovering/Resolving]
  - Intraductal proliferative breast lesion [Unknown]
  - Diverticulitis [Unknown]
  - Polyneuropathy [Unknown]
  - Back pain [Unknown]
  - Pineal gland cyst [Unknown]
  - Headache [Unknown]
  - Anxiety [Unknown]
  - Hiatus hernia [Unknown]
  - Restless legs syndrome [Unknown]
  - Intervertebral disc degeneration [Unknown]
  - Migraine [Unknown]
  - Neuropathy peripheral [Unknown]
  - Depression [Unknown]
  - Balance disorder [Unknown]
  - Local swelling [Unknown]
  - Pain [Unknown]
